FAERS Safety Report 22227217 (Version 1)
Quarter: 2023Q2

REPORT INFORMATION
  Report Type: Spontaneous
  Country: CN (occurrence: CN)
  Receive Date: 20230419
  Receipt Date: 20230419
  Transmission Date: 20230722
  Serious: Yes (Death, Other)
  Sender: FDA-Public Use
  Company Number: CN-SA-SAC20230417001700

PATIENT
  Age: 57 Year
  Sex: Male

DRUGS (8)
  1. ANTI-THYMOCYTE GLOBULIN (RABBIT) NOS [Suspect]
     Active Substance: LAPINE T-LYMPHOCYTE IMMUNE GLOBULIN
     Indication: Allogenic stem cell transplantation
     Dosage: 125MG
     Route: 041
     Dates: start: 20230407, end: 20230408
  2. BENDAMUSTINE HYDROCHLORIDE [Suspect]
     Active Substance: BENDAMUSTINE HYDROCHLORIDE
     Indication: Allogenic stem cell transplantation
     Dosage: 200MG
     Route: 041
     Dates: start: 20230402, end: 20230402
  3. LEVETIRACETAM [Suspect]
     Active Substance: LEVETIRACETAM
     Indication: Allogenic stem cell transplantation
     Dosage: 1000 MG
     Route: 048
     Dates: start: 20230405, end: 20230409
  4. CYCLOPHOSPHAMIDE [Suspect]
     Active Substance: CYCLOPHOSPHAMIDE
     Indication: Allogenic stem cell transplantation
     Dosage: 900MG
     Route: 041
     Dates: start: 20230404, end: 20230405
  5. DECITABINE [Suspect]
     Active Substance: DECITABINE
     Indication: Allogenic stem cell transplantation
     Dosage: 50MG
     Dates: start: 20230402, end: 20230406
  6. BUSULFEX [Suspect]
     Active Substance: BUSULFAN
     Indication: Allogenic stem cell transplantation
     Dosage: 60MG
     Route: 041
     Dates: start: 20230406, end: 20230408
  7. CYTARABINE [Suspect]
     Active Substance: CYTARABINE
     Indication: Allogenic stem cell transplantation
     Dosage: 2600MG
     Route: 041
     Dates: start: 20230402, end: 20230406
  8. FLUDARABINE PHOSPHATE [Suspect]
     Active Substance: FLUDARABINE PHOSPHATE
     Indication: Allogenic stem cell transplantation
     Dosage: 50MG
     Route: 041
     Dates: start: 20230402, end: 20230406

REACTIONS (14)
  - Cardio-respiratory arrest [Fatal]
  - Cardiac arrest [Fatal]
  - Serum sickness [Unknown]
  - Arthralgia [Unknown]
  - Breath sounds abnormal [Unknown]
  - Pain [Unknown]
  - Headache [Unknown]
  - Back pain [Unknown]
  - Oedema peripheral [Unknown]
  - Blood pressure decreased [Unknown]
  - Ventricular fibrillation [Unknown]
  - Ventricular tachycardia [Unknown]
  - Myalgia [Unknown]
  - Mydriasis [Unknown]

NARRATIVE: CASE EVENT DATE: 20230407
